FAERS Safety Report 7028386-2 (Version None)
Quarter: 2010Q4

REPORT INFORMATION
  Report Type: 
  Country: None (occurrence: None)
  Receive Date: 20101005
  Receipt Date: 20100923
  Transmission Date: 20110411
  Serious: Yes (Other)
  Sender: FDA-Public Use
  Company Number: US-PFIZER INC-2010121904

PATIENT
  Sex: Male
  Weight: 113 kg

DRUGS (10)
  1. VFEND [Suspect]
     Indication: ASPERGILLOSIS
     Dosage: 600 MG, 2X/DAY
     Route: 042
     Dates: start: 20100922, end: 20100922
  2. VFEND [Suspect]
     Dosage: 400 MG, 2X/DAY
     Route: 042
     Dates: start: 20100923
  3. VANCOMYCIN [Concomitant]
     Dosage: UNK
  4. ACYCLOVIR SODIUM [Concomitant]
     Dosage: UNK
  5. PRIMAXIN [Concomitant]
     Dosage: UNK
  6. GUAIFENESIN [Concomitant]
     Dosage: UNK
  7. PEPCID [Concomitant]
     Dosage: UNK
  8. LORTAB [Concomitant]
     Indication: PAIN
     Dosage: UNK
  9. DILAUDID [Concomitant]
     Indication: PAIN
     Dosage: UNK
  10. TYLENOL [Concomitant]
     Indication: PAIN
     Dosage: UNK

REACTIONS (5)
  - HAEMOGLOBIN ABNORMAL [None]
  - NEUTROPHIL COUNT ABNORMAL [None]
  - PLATELET COUNT DECREASED [None]
  - TREMOR [None]
  - WHITE BLOOD CELL COUNT DECREASED [None]
